FAERS Safety Report 4467620-X (Version None)
Quarter: 2004Q4

REPORT INFORMATION
  Report Type: 
  Country: None (occurrence: None)
  Receive Date: 20041004
  Receipt Date: 20040917
  Transmission Date: 20050328
  Serious: Yes (Hospitalization)
  Sender: FDA-Public Use
  Company Number: S04-USA-00834-01

PATIENT
  Age: 69 Year
  Sex: Female

DRUGS (6)
  1. LEXAPRO [Suspect]
     Dosage: 10 MG QD PO
     Route: 048
     Dates: start: 20040201, end: 20040201
  2. CELEBREX [Concomitant]
  3. LORAZEPAM [Concomitant]
  4. XANAX [Concomitant]
  5. ACIPHEX [Concomitant]
  6. TYLENOL [Concomitant]

REACTIONS (47)
  - AGITATION [None]
  - ANXIETY [None]
  - ASTHENIA [None]
  - ATELECTASIS [None]
  - BLOOD CORTISOL INCREASED [None]
  - BLOOD CREATINE PHOSPHOKINASE INCREASED [None]
  - BLOOD CREATINE PHOSPHOKINASE MB ABNORMAL [None]
  - BLOOD GLUCOSE INCREASED [None]
  - BLOOD SODIUM DECREASED [None]
  - CANDIDIASIS [None]
  - CATATONIA [None]
  - CEREBRAL INFARCTION [None]
  - CHEST X-RAY ABNORMAL [None]
  - COMA [None]
  - COMMUNICATION DISORDER [None]
  - CONFUSIONAL STATE [None]
  - CORNEAL REFLEX DECREASED [None]
  - CSF MYELIN BASIC PROTEIN INCREASED [None]
  - CULTURE URINE POSITIVE [None]
  - CYST [None]
  - DECREASED APPETITE [None]
  - DIARRHOEA [None]
  - EATING DISORDER [None]
  - ENCEPHALITIS HERPES [None]
  - ENCEPHALITIS VIRAL [None]
  - FATIGUE [None]
  - FEELING ABNORMAL [None]
  - HAEMATURIA [None]
  - HEPATIC ENZYME INCREASED [None]
  - HYPONATRAEMIA [None]
  - HYPOTHYROIDISM [None]
  - INAPPROPRIATE ANTIDIURETIC HORMONE SECRETION [None]
  - LIVER FUNCTION TEST ABNORMAL [None]
  - MYALGIA [None]
  - NAUSEA [None]
  - PLEURAL EFFUSION [None]
  - PNEUMONIA [None]
  - PNEUMONIA ASPIRATION [None]
  - RESPIRATORY DISORDER [None]
  - RESTLESSNESS [None]
  - RHABDOMYOLYSIS [None]
  - SHIFT TO THE LEFT [None]
  - STATUS EPILEPTICUS [None]
  - TROPONIN I INCREASED [None]
  - VOMITING [None]
  - WEIGHT DECREASED [None]
  - WHITE BLOOD CELL COUNT INCREASED [None]
